FAERS Safety Report 15676059 (Version 1)
Quarter: 2018Q4

REPORT INFORMATION
  Report Type: Spontaneous
  Country: JP (occurrence: JP)
  Receive Date: 20181130
  Receipt Date: 20181130
  Transmission Date: 20190205
  Serious: Yes (Other)
  Sender: FDA-Public Use
  Company Number: JP-SA-2018SA296517

PATIENT
  Age: 6 Decade
  Sex: Female

DRUGS (5)
  1. KEVZARA [Suspect]
     Active Substance: SARILUMAB
     Indication: RHEUMATOID ARTHRITIS
     Dosage: 200 MG ONCE EVERY 3 WEEKS
     Route: 058
     Dates: start: 20180606, end: 20181024
  2. TIRASHIZIN [Concomitant]
     Indication: HYPOTHYROIDISM
     Dosage: 100 MG, TREATMENT ONGOING
     Route: 065
  3. METHOTREXATE. [Concomitant]
     Active Substance: METHOTREXATE
     Indication: RHEUMATOID ARTHRITIS
     Dosage: 4 MG, QD
     Route: 048
     Dates: start: 20170509
  4. PREDONINE [PREDNISOLONE ACETATE] [Concomitant]
     Indication: RHEUMATIC DISORDER
     Dosage: 5 MG
     Route: 065
  5. FOLIAMIN [Concomitant]
     Active Substance: FOLIC ACID
     Indication: RHEUMATIC DISORDER
     Dosage: 5 MG
     Route: 065

REACTIONS (2)
  - Hepatic function abnormal [Recovered/Resolved]
  - Cardiac failure [Recovered/Resolved]

NARRATIVE: CASE EVENT DATE: 20181024
